FAERS Safety Report 5155138-0 (Version None)
Quarter: 2006Q4

REPORT INFORMATION
  Report Type: 
  Country: None (occurrence: None)
  Receive Date: 20061121
  Receipt Date: 20060912
  Transmission Date: 20070319
  Serious: Yes (Hospitalization, Other)
  Sender: FDA-Public Use
  Company Number: FR-ELI_LILLY_AND_COMPANY-FR200609003037

PATIENT
  Age: 66 Year
  Sex: Male
  Weight: 89 kg

DRUGS (1)
  1. GEMZAR [Suspect]
     Indication: PANCREATIC CARCINOMA
     Dosage: 2000 MG, MONTHLY (1/M)
     Route: 042
     Dates: start: 20051108, end: 20060912

REACTIONS (4)
  - CARDIAC FAILURE [None]
  - DRUG TOXICITY [None]
  - HYPERTENSION [None]
  - RENAL FAILURE [None]
